FAERS Safety Report 5498545-9 (Version None)
Quarter: 2007Q4

REPORT INFORMATION
  Report Type: 
  Country: None (occurrence: None)
  Receive Date: 20071026
  Receipt Date: 20071018
  Transmission Date: 20080405
  Serious: Yes (Other)
  Sender: FDA-Public Use
  Company Number: PHBS2006JP15170

PATIENT
  Age: 67 Year
  Sex: Female

DRUGS (2)
  1. AREDIA [Suspect]
     Indication: MULTIPLE MYELOMA
     Dosage: UNK, UNK
     Route: 042
  2. INCADRONIC ACID [Suspect]
     Dosage: UNK, UNK
     Route: 065

REACTIONS (1)
  - OSTEONECROSIS [None]
